FAERS Safety Report 6772699-6 (Version None)
Quarter: 2010Q2

REPORT INFORMATION
  Report Type: 
  Country: None (occurrence: None)
  Receive Date: 20100616
  Receipt Date: 20090623
  Transmission Date: 20101027
  Serious: No
  Sender: FDA-Public Use
  Company Number: US-ASTRAZENECA-2009UW17392

PATIENT
  Age: 84 Year
  Sex: Female
  Weight: 44 kg

DRUGS (3)
  1. PULMICORT FLEXHALER [Suspect]
     Indication: CHRONIC OBSTRUCTIVE PULMONARY DISEASE
     Dosage: 2 PUFFS
     Route: 055
     Dates: start: 20000101
  2. PULMICORT FLEXHALER [Suspect]
     Indication: BRONCHIAL DISORDER
     Dosage: 2 PUFFS
     Route: 055
     Dates: start: 20000101
  3. COMBIVENT [Concomitant]

REACTIONS (2)
  - COUGH [None]
  - WEIGHT DECREASED [None]
